FAERS Safety Report 8993236 (Version 6)
Quarter: 2013Q2

REPORT INFORMATION
  Report Type: Spontaneous
  Country: US (occurrence: US)
  Receive Date: 20130102
  Receipt Date: 20130625
  Transmission Date: 20140414
  Serious: No
  Sender: FDA-Public Use
  Company Number: US-PFIZER INC-2012333483

PATIENT
  Age: 51 Year
  Sex: Female
  Weight: 81.18 kg

DRUGS (6)
  1. ALPRAZOLAM [Suspect]
     Indication: ANXIETY
     Dosage: 0.50 MG, 2X/DAY
  2. ALPRAZOLAM [Suspect]
     Indication: POSTPARTUM DEPRESSION
     Dosage: 0.5 MG, 2X/DAY
     Dates: end: 20121229
  3. PAMELOR [Concomitant]
     Indication: ANXIETY
     Dosage: 25 MG, DAILY
  4. PAMELOR [Concomitant]
     Indication: POSTPARTUM DEPRESSION
  5. PAXIL [Concomitant]
     Indication: ANXIETY
     Dosage: 30 MG, DAILY
     Dates: start: 1998
  6. PAXIL [Concomitant]
     Indication: POSTPARTUM DEPRESSION

REACTIONS (4)
  - Product size issue [Unknown]
  - Dizziness [Not Recovered/Not Resolved]
  - Hypersomnia [Not Recovered/Not Resolved]
  - Activities of daily living impaired [Not Recovered/Not Resolved]
